FAERS Safety Report 9348009 (Version 1)
Quarter: 2013Q2

REPORT INFORMATION
  Report Type: Spontaneous
  Country: US (occurrence: None)
  Receive Date: 20130612
  Receipt Date: 20130612
  Transmission Date: 20140414
  Serious: Yes (Hospitalization)
  Sender: FDA-Public Use
  Company Number: None

PATIENT
  Age: 64 Year
  Sex: Male
  Weight: 65.91 kg

DRUGS (1)
  1. CARVEDILOL [Suspect]
     Route: 048
     Dates: start: 20120305, end: 20120316

REACTIONS (4)
  - Pneumonia [None]
  - Bradycardia [None]
  - Hypotension [None]
  - Renal failure [None]
